FAERS Safety Report 13996508 (Version 1)
Quarter: 2017Q3

REPORT INFORMATION
  Report Type: Spontaneous
  Country: US (occurrence: US)
  Receive Date: 20170921
  Receipt Date: 20170921
  Transmission Date: 20171128
  Serious: No
  Sender: FDA-Public Use
  Company Number: US-TEVA-775289USA

PATIENT
  Sex: Female
  Weight: 2.16 kg

DRUGS (6)
  1. PRENATAL VITAMIN [Concomitant]
     Active Substance: VITAMINS
  2. LISINOPRIL. [Suspect]
     Active Substance: LISINOPRIL
     Indication: PERIPARTUM CARDIOMYOPATHY
     Dosage: 20 MILLIGRAM DAILY;
     Dates: start: 20160828
  3. FUROSEMIDE. [Suspect]
     Active Substance: FUROSEMIDE
     Dosage: 40 MILLIGRAM DAILY;
     Dates: start: 201609, end: 201609
  4. CARVEDILOL. [Suspect]
     Active Substance: CARVEDILOL
     Dosage: 18.75 MG IN AM, 12.5MG AT NIGHT
     Route: 063
  5. ENALAPRIL [Suspect]
     Active Substance: ENALAPRIL
     Dosage: 10 MILLIGRAM DAILY;
  6. SPIRONOLACTONE. [Suspect]
     Active Substance: SPIRONOLACTONE
     Dosage: 25MG, TAKES HALF

REACTIONS (2)
  - Exposure during breast feeding [Unknown]
  - Diarrhoea [Unknown]
